FAERS Safety Report 16695366 (Version 2)
Quarter: 2020Q2

REPORT INFORMATION
  Report Type: Spontaneous
  Country: US (occurrence: US)
  Receive Date: 20190813
  Receipt Date: 20200522
  Transmission Date: 20200713
  Serious: No
  Sender: FDA-Public Use
  Company Number: US-BIOGEN-2019BI00772408

PATIENT
  Sex: Female

DRUGS (1)
  1. TECFIDERA [Suspect]
     Active Substance: DIMETHYL FUMARATE
     Indication: MULTIPLE SCLEROSIS
     Route: 065
     Dates: start: 20160803, end: 20160920

REACTIONS (5)
  - Fatigue [Unknown]
  - Paraesthesia [Unknown]
  - Musculoskeletal disorder [Unknown]
  - Pain [Unknown]
  - Musculoskeletal stiffness [Unknown]
